FAERS Safety Report 19151111 (Version 1)
Quarter: 2021Q2

REPORT INFORMATION
  Report Type: Spontaneous
  Country: US (occurrence: US)
  Receive Date: 20210419
  Receipt Date: 20210419
  Transmission Date: 20210717
  Serious: Yes (Other)
  Sender: FDA-Public Use
  Company Number: US-TEVA-2021-US-1899741

PATIENT
  Age: 63 Year
  Sex: Male

DRUGS (1)
  1. TESTOSTERONE. [Suspect]
     Active Substance: TESTOSTERONE
     Route: 065

REACTIONS (5)
  - Peripheral swelling [Recovered/Resolved]
  - Breast discomfort [Unknown]
  - Rash [Unknown]
  - Neuropathy peripheral [Not Recovered/Not Resolved]
  - Joint swelling [Recovered/Resolved]

NARRATIVE: CASE EVENT DATE: 2020
